APPROVED DRUG PRODUCT: DEXMEDETOMIDINE HYDROCHLORIDE
Active Ingredient: DEXMEDETOMIDINE HYDROCHLORIDE
Strength: EQ 200MCG BASE/2ML (EQ 100MCG BASE/ML)
Dosage Form/Route: INJECTABLE;INJECTION
Application: A203773 | Product #001
Applicant: AMERICAN REGENT INC
Approved: May 12, 2017 | RLD: No | RS: No | Type: DISCN